FAERS Safety Report 4875658-3 (Version None)
Quarter: 2006Q1

REPORT INFORMATION
  Report Type: 
  Country: None (occurrence: None)
  Receive Date: 20060105
  Receipt Date: 20051121
  Transmission Date: 20060701
  Serious: Yes (Death, Hospitalization)
  Sender: FDA-Public Use
  Company Number: MEDI-0003827

PATIENT
  Age: 3 Month
  Sex: Female
  Weight: 4.6 kg

DRUGS (14)
  1. SYNAGIS [Suspect]
     Indication: ANTIVIRAL PROPHYLAXIS
     Dosage: SEE IMAGE
     Route: 030
     Dates: start: 20051006, end: 20051006
  2. SYNAGIS [Suspect]
     Indication: ANTIVIRAL PROPHYLAXIS
     Dosage: SEE IMAGE
     Route: 030
     Dates: start: 20051102, end: 20051102
  3. DIGOXIN [Concomitant]
  4. TIPEPIDINE HIBENZATE (TIPEPIDINE HIBENZATE) [Concomitant]
  5. L-CARBOCISTEINE (CARBOCISTEINE) [Concomitant]
  6. LYSOZYME HYDROCHLORIDE (LYSOZYME HYDROCHLORIDE) [Concomitant]
  7. ANTIBIOTICS RESISTANT LACTIC ACID BACTERIAE [Concomitant]
  8. ERYTHROMYCIN ETHYLSUCCINATE [Concomitant]
  9. AMBROXOL (AMBROXOL) [Concomitant]
  10. FLOMOXEF SODIUM (FLOMOXEF SODIUM) [Concomitant]
  11. AMIKACIN [Concomitant]
  12. PANIPENEM/BETAMIPRON (PANIPENEM) [Concomitant]
  13. CEFTAZIDIME SODIUM [Concomitant]
  14. AMINOPHYLLIN [Concomitant]

REACTIONS (6)
  - CARDIAC FAILURE [None]
  - NAUSEA [None]
  - PYREXIA [None]
  - RESPIRATORY FAILURE [None]
  - TACHYCARDIA [None]
  - VOMITING [None]
